FAERS Safety Report 13088704 (Version 2)
Quarter: 2017Q3

REPORT INFORMATION
  Report Type: Report from Study
  Country: CA (occurrence: CA)
  Receive Date: 20170105
  Receipt Date: 20170713
  Transmission Date: 20171127
  Serious: Yes (Death, Other)
  Sender: FDA-Public Use
  Company Number: CA-AMGEN-CANSL2017000533

PATIENT
  Age: 69 Year
  Sex: Male

DRUGS (1)
  1. PROLIA [Suspect]
     Active Substance: DENOSUMAB
     Indication: PRODUCT USED FOR UNKNOWN INDICATION
     Dosage: UNK
     Route: 065
     Dates: start: 20160203

REACTIONS (5)
  - Head injury [Unknown]
  - Cerebrovascular accident [Unknown]
  - Weight increased [Unknown]
  - Nasal congestion [Unknown]
  - Death [Fatal]

NARRATIVE: CASE EVENT DATE: 20161231
